FAERS Safety Report 7911530-X (Version None)
Quarter: 2011Q4

REPORT INFORMATION
  Report Type: 
  Country: None (occurrence: None)
  Receive Date: 20111114
  Receipt Date: 20111031
  Transmission Date: 20120403
  Serious: Yes (Other)
  Sender: FDA-Public Use
  Company Number: US-ELI_LILLY_AND_COMPANY-US201111000245

PATIENT
  Age: 44 Year
  Sex: Male

DRUGS (3)
  1. CYMBALTA [Suspect]
     Indication: ANXIETY
     Dosage: 60 MG, QD
     Dates: start: 20070601, end: 20110622
  2. ANDROGEL [Concomitant]
  3. BYSTOLIC [Concomitant]

REACTIONS (1)
  - PANCREATITIS [None]
